FAERS Safety Report 6413584-9 (Version None)
Quarter: 2009Q4

REPORT INFORMATION
  Report Type: 
  Country: None (occurrence: None)
  Receive Date: 20091020
  Receipt Date: 20091012
  Transmission Date: 20100525
  Serious: Yes (Hospitalization)
  Sender: FDA-Public Use
  Company Number: 2009SP030158

PATIENT
  Age: 52 Year
  Sex: Female

DRUGS (15)
  1. VIRAFERONPEG [Suspect]
     Indication: DRUG USE FOR UNKNOWN INDICATION
     Dosage: 90 MCG; QW; SC
     Route: 058
     Dates: start: 20090801, end: 20090904
  2. REBETOL [Suspect]
     Indication: DRUG USE FOR UNKNOWN INDICATION
  3. CIPROFLOXACIN HCL [Suspect]
     Indication: DRUG USE FOR UNKNOWN INDICATION
     Dosage: 400 MG; IV; 1000 MG
     Route: 042
     Dates: start: 20090904, end: 20090909
  4. CIPROFLOXACIN HCL [Suspect]
     Indication: DRUG USE FOR UNKNOWN INDICATION
     Dosage: 400 MG; IV; 1000 MG
     Route: 042
     Dates: start: 20090915, end: 20090921
  5. FLAGYL [Concomitant]
  6. TAZOCILLINE [Concomitant]
  7. CELLCEPT [Concomitant]
  8. NEORAL [Concomitant]
  9. EFFEXOR [Concomitant]
  10. NOCTRAN [Concomitant]
  11. PRIMPERAN [Concomitant]
  12. DELURSAN [Concomitant]
  13. MYFORTIC [Concomitant]
  14. CONTRAMAL [Concomitant]
  15. MORPHINE [Concomitant]

REACTIONS (3)
  - BILE DUCT STONE [None]
  - DELUSION [None]
  - HALLUCINATION [None]
